FAERS Safety Report 6313519-3 (Version None)
Quarter: 2009Q3

REPORT INFORMATION
  Report Type: 
  Country: None (occurrence: None)
  Receive Date: 20090818
  Receipt Date: 20090806
  Transmission Date: 20100115
  Serious: Yes (Hospitalization, Other)
  Sender: FDA-Public Use
  Company Number: US-ELI_LILLY_AND_COMPANY-US200903007491

PATIENT
  Sex: Female

DRUGS (1)
  1. HUMATROPE [Suspect]
     Indication: GROWTH HORMONE DEFICIENCY
     Dosage: UNK, UNKNOWN

REACTIONS (6)
  - CYSTITIS INTERSTITIAL [None]
  - DRUG DOSE OMISSION [None]
  - HOSPITALISATION [None]
  - HYPERPITUITARISM [None]
  - HYPOPITUITARISM [None]
  - STAPHYLOCOCCAL INFECTION [None]
